FAERS Safety Report 5308310-0 (Version None)
Quarter: 2007Q2

REPORT INFORMATION
  Report Type: 
  Country: None (occurrence: None)
  Receive Date: 20070423
  Receipt Date: 20070423
  Transmission Date: 20071010
  Serious: Yes (Other)
  Sender: FDA-Public Use
  Company Number: None

PATIENT
  Age: 6 Year
  Sex: Female
  Weight: 18.1439 kg

DRUGS (1)
  1. LISTERINE AGENT COOL BLUE [Suspect]
     Indication: DENTAL PLAQUE
     Dosage: DENTAL
     Route: 004
     Dates: start: 20060101, end: 20070409

REACTIONS (4)
  - GENERAL PHYSICAL HEALTH DETERIORATION [None]
  - IMMUNE SYSTEM DISORDER [None]
  - MALAISE [None]
  - THERAPEUTIC PRODUCT CONTAMINATION [None]
